FAERS Safety Report 10082034 (Version 2)
Quarter: 2014Q3

REPORT INFORMATION
  Report Type: Spontaneous
  Country: US (occurrence: None)
  Receive Date: 20140414
  Receipt Date: 20140801
  Transmission Date: 20150326
  Serious: Yes (Hospitalization, Other)
  Sender: FDA-Public Use
  Company Number: UTC-046920

PATIENT
  Age: 69 Year
  Sex: Female
  Weight: 70.8 kg

DRUGS (2)
  1. REMODULIN [Suspect]
     Active Substance: TREPROSTINIL
     Indication: PULMONARY ARTERIAL HYPERTENSION
     Dosage: 36 UG/KG (0.025 UG/KG, 1 IN 1 MIN), SUBCUTANEOUS
     Route: 058
     Dates: start: 20131112
  2. LETAIRIS (AMBRISENTAN) [Concomitant]

REACTIONS (10)
  - Abdominal neoplasm [None]
  - Erythema [None]
  - Dizziness [None]
  - Pneumonia [None]
  - Cerebrovascular accident [None]
  - Infusion site erythema [None]
  - Infusion site pain [None]
  - Confusional state [None]
  - Fall [None]
  - Pain [None]

NARRATIVE: CASE EVENT DATE: 20140326
